FAERS Safety Report 8797559 (Version 2)
Quarter: 2012Q4

REPORT INFORMATION
  Report Type: 
  Country: AU (occurrence: AU)
  Receive Date: 20120920
  Receipt Date: 20120927
  Transmission Date: 20130627
  Serious: Yes (Death)
  Sender: FDA-Public Use
  Company Number: PHHY2012AU081549

PATIENT
  Age: 83 Year
  Sex: Female

DRUGS (5)
  1. ACLASTA [Suspect]
     Dosage: 5 mg, UNK
     Route: 042
     Dates: start: 20100909
  2. ACLASTA [Suspect]
     Dosage: 5 mg, UNK
     Route: 042
     Dates: start: 20110914
  3. LIPITOR [Concomitant]
     Indication: HYPERLIPIDAEMIA
     Dosage: 80 mg, UNK
     Route: 048
  4. FUNGILIN [Concomitant]
     Indication: ORAL CANDIDIASIS
     Dosage: 10 mg, BID
     Route: 048
     Dates: start: 20111205
  5. NIZORAL [Concomitant]
     Indication: ORAL CANDIDIASIS
     Dosage: 200 mg, UNK
     Route: 048
     Dates: start: 20111205

REACTIONS (1)
  - Death [Fatal]
